FAERS Safety Report 8600556-9 (Version None)
Quarter: 2012Q3

REPORT INFORMATION
  Report Type: 
  Country: None (occurrence: None)
  Receive Date: 20120817
  Receipt Date: 20120809
  Transmission Date: 20120928
  Serious: Yes (Other)
  Sender: FDA-Public Use
  Company Number: US-BAYER-2012-082393

PATIENT
  Age: 50 Year
  Sex: Female
  Weight: 77.098 kg

DRUGS (3)
  1. AMARYL [Concomitant]
     Dosage: UNK
  2. AVANDIA [Concomitant]
     Dosage: UNK
  3. YASMIN [Suspect]
     Indication: MENOPAUSAL SYMPTOMS
     Dosage: UNK

REACTIONS (1)
  - DEEP VEIN THROMBOSIS [None]
